FAERS Safety Report 15721623 (Version 1)
Quarter: 2018Q4

REPORT INFORMATION
  Report Type: Spontaneous
  Country: US (occurrence: US)
  Receive Date: 20181214
  Receipt Date: 20181214
  Transmission Date: 20190205
  Serious: Yes (Hospitalization)
  Sender: FDA-Public Use
  Company Number: US-EMMAUS MEDICAL, INC.-EMM201812-000935

PATIENT
  Sex: Female

DRUGS (1)
  1. ENDARI [Suspect]
     Active Substance: GLUTAMINE
     Indication: SICKLE CELL DISEASE
     Route: 048
     Dates: start: 20180522

REACTIONS (6)
  - Abdominal pain [Unknown]
  - Pneumonia [Unknown]
  - Abdominal distension [Unknown]
  - Flatulence [Unknown]
  - Lung disorder [Unknown]
  - Cardiac failure congestive [Unknown]
